FAERS Safety Report 11016252 (Version 2)
Quarter: 2015Q2

REPORT INFORMATION
  Report Type: Spontaneous
  Country: US (occurrence: US)
  Receive Date: 20150412
  Receipt Date: 20150525
  Transmission Date: 20150821
  Serious: No
  Sender: FDA-Public Use
  Company Number: US-JNJFOC-20130412946

PATIENT
  Age: 63 Year
  Sex: Female
  Weight: 70.31 kg

DRUGS (2)
  1. SIMPONI [Suspect]
     Active Substance: GOLIMUMAB
     Indication: RHEUMATOID ARTHRITIS
     Route: 058
  2. BIAXIN [Suspect]
     Active Substance: CLARITHROMYCIN
     Indication: BRONCHITIS
     Route: 048
     Dates: start: 201304, end: 201304

REACTIONS (6)
  - Bronchitis [Recovered/Resolved]
  - Pain [Recovered/Resolved]
  - Device malfunction [Recovered/Resolved]
  - Malaise [Recovered/Resolved]
  - Drug dose omission [Not Recovered/Not Resolved]
  - Chills [Recovered/Resolved]

NARRATIVE: CASE EVENT DATE: 201304
